FAERS Safety Report 14081967 (Version 1)
Quarter: 2017Q4

REPORT INFORMATION
  Report Type: Spontaneous
  Country: GB (occurrence: GB)
  Receive Date: 20171013
  Receipt Date: 20171013
  Transmission Date: 20180321
  Serious: Yes (Other)
  Sender: FDA-Public Use
  Company Number: GB-FRESENIUS KABI-FK201708454

PATIENT
  Age: 30 Year
  Sex: Male

DRUGS (4)
  1. CIPROFLOXACIN (MANUFACTURER UNKNOWN) [Suspect]
     Active Substance: CIPROFLOXACIN
     Indication: STENOTROPHOMONAS INFECTION
     Route: 065
  2. COTRIMOXAZOLE [Suspect]
     Active Substance: SULFAMETHOXAZOLE\TRIMETHOPRIM
     Indication: STENOTROPHOMONAS INFECTION
  3. GENTAMICIN. [Suspect]
     Active Substance: GENTAMICIN
     Indication: STENOTROPHOMONAS INFECTION
  4. LINEZOLID (MANUFACTURER UNKNOWN) [Suspect]
     Active Substance: LINEZOLID
     Indication: STENOTROPHOMONAS INFECTION
     Route: 065

REACTIONS (1)
  - Stenotrophomonas infection [Unknown]
